FAERS Safety Report 6578323-X (Version None)
Quarter: 2010Q1

REPORT INFORMATION
  Report Type: 
  Country: None (occurrence: None)
  Receive Date: 20100211
  Receipt Date: 20100209
  Transmission Date: 20100710
  Serious: Yes (Death)
  Sender: FDA-Public Use
  Company Number: FR-SANOFI-AVENTIS-2010SA007451

PATIENT
  Age: 77 Year
  Sex: Male

DRUGS (15)
  1. KARDEGIC [Suspect]
     Route: 048
     Dates: start: 20080101, end: 20100111
  2. LASILIX [Suspect]
     Route: 048
     Dates: start: 20080101, end: 20091229
  3. LASILIX [Suspect]
     Route: 048
     Dates: start: 20091230, end: 20100106
  4. ZOLOFT [Suspect]
     Route: 048
     Dates: start: 20091224, end: 20100111
  5. SERESTA [Suspect]
     Route: 048
     Dates: start: 20091203, end: 20091215
  6. SERESTA [Suspect]
     Route: 048
     Dates: start: 20091215, end: 20100110
  7. ESOMEPRAZOLE [Suspect]
     Indication: DRUG USE FOR UNKNOWN INDICATION
     Route: 048
     Dates: start: 20091202, end: 20100109
  8. TAHOR [Suspect]
     Indication: HYPERCHOLESTEROLAEMIA
     Route: 048
     Dates: start: 20091202, end: 20100110
  9. KREDEX [Suspect]
     Indication: CARDIAC FAILURE
     Route: 048
     Dates: start: 20090901
  10. DISCOTRINE [Suspect]
     Indication: DRUG USE FOR UNKNOWN INDICATION
     Route: 062
     Dates: start: 20090901, end: 20100111
  11. LEVOTHYROXINE SODIUM [Suspect]
     Indication: HYPOTHYROIDISM
     Route: 048
     Dates: end: 20100113
  12. DIFFU K [Suspect]
     Route: 048
     Dates: start: 20080101
  13. STABLON [Concomitant]
     Route: 048
     Dates: start: 20091202, end: 20091223
  14. KAYEXALATE [Concomitant]
     Indication: HYPERCHOLESTEROLAEMIA
     Dosage: 1 DF ON 18, 20 AND 26-DEC-2009
     Route: 048
     Dates: start: 20091218, end: 20091226
  15. ATARAX [Concomitant]
     Indication: DEPRESSION
     Dates: end: 20091202

REACTIONS (1)
  - DISSEMINATED INTRAVASCULAR COAGULATION [None]
